FAERS Safety Report 9052684 (Version 2)
Quarter: 2017Q4

REPORT INFORMATION
  Report Type: Spontaneous
  Country: JP (occurrence: JP)
  Receive Date: 20130207
  Receipt Date: 20171129
  Transmission Date: 20180321
  Serious: Yes (Hospitalization)
  Sender: FDA-Public Use
  Company Number: JP-NOVOPROD-370335

PATIENT
  Age: 60 Year
  Sex: Female

DRUGS (10)
  1. ARTZ DISPO [Concomitant]
  2. GLACTIV [Concomitant]
     Active Substance: SITAGLIPTIN
  3. KINEDAK [Concomitant]
     Active Substance: EPALRESTAT
  4. SUREPOST [Suspect]
     Active Substance: REPAGLINIDE
     Indication: TYPE 2 DIABETES MELLITUS
     Dosage: 0.75 MG, QD
     Route: 048
     Dates: start: 20120107, end: 20120216
  5. SENNA [Concomitant]
     Active Substance: SENNA LEAF\SENNOSIDES\SENNOSIDES A AND B
  6. PURSENNID                          /00142207/ [Concomitant]
     Active Substance: SENNA LEAF
  7. ACTOS [Concomitant]
     Active Substance: PIOGLITAZONE HYDROCHLORIDE
  8. XYLOCAINE [Concomitant]
     Active Substance: LIDOCAINE HYDROCHLORIDE
  9. GLUBES [Concomitant]
     Active Substance: MITIGLINIDE CALCIUM HYDRATE\VOGLIBOSE
  10. ORGADRONE                          /00016002/ [Concomitant]

REACTIONS (1)
  - Diabetic coma [Recovering/Resolving]

NARRATIVE: CASE EVENT DATE: 20120214
